FAERS Safety Report 5712349-0 (Version None)
Quarter: 2008Q2

REPORT INFORMATION
  Report Type: 
  Country: None (occurrence: None)
  Receive Date: 20080421
  Receipt Date: 20080421
  Transmission Date: 20081010
  Serious: Yes (Death)
  Sender: FDA-Public Use
  Company Number: None

PATIENT
  Age: 54 Year
  Sex: Male
  Weight: 95.2554 kg

DRUGS (1)
  1. MYFORTIC [Suspect]
     Indication: RENAL TRANSPLANT
     Dosage: 2 TABLETS 2 X DAILY PO
     Route: 048
     Dates: start: 20070101, end: 20070412

REACTIONS (7)
  - COLON CANCER METASTATIC [None]
  - COLON CANCER RECURRENT [None]
  - METASTASES TO LUNG [None]
  - METASTASES TO LYMPH NODES [None]
  - METASTASES TO OESOPHAGUS [None]
  - METASTASES TO SMALL INTESTINE [None]
  - METASTASES TO STOMACH [None]
